FAERS Safety Report 6167561-6 (Version None)
Quarter: 2009Q2

REPORT INFORMATION
  Report Type: 
  Country: None (occurrence: None)
  Receive Date: 20090424
  Receipt Date: 20090324
  Transmission Date: 20091009
  Serious: No
  Sender: FDA-Public Use
  Company Number: US-BAYER-200910979BCC

PATIENT
  Age: 62 Year
  Sex: Male
  Weight: 84 kg

DRUGS (1)
  1. ALEVE [Suspect]
     Indication: MENIERE'S DISEASE
     Dosage: UNIT DOSE: 220 MG
     Route: 048
     Dates: start: 20090220, end: 20090324

REACTIONS (1)
  - FOREIGN BODY TRAUMA [None]
